FAERS Safety Report 19706657 (Version 11)
Quarter: 2022Q3

REPORT INFORMATION
  Report Type: Report from Study
  Country: CN (occurrence: CN)
  Receive Date: 20210817
  Receipt Date: 20220927
  Transmission Date: 20221026
  Serious: Yes (Death, Life-Threatening, Hospitalization)
  Sender: FDA-Public Use
  Company Number: CN-ELI_LILLY_AND_COMPANY-CN202107001009

PATIENT
  Age: 51 Year
  Sex: Male
  Weight: 63.5 kg

DRUGS (53)
  1. PEMETREXED [Suspect]
     Active Substance: PEMETREXED
     Indication: Non-small cell lung cancer metastatic
     Dosage: 500 MG, CYCLICAL (EVERY 3 WEEKS)
     Route: 042
     Dates: start: 20210615, end: 20210615
  2. PEMETREXED [Suspect]
     Active Substance: PEMETREXED
     Dosage: 500 MG, CYCLICAL (EVERY 3 WEEKS)
     Route: 042
     Dates: start: 20210708, end: 20210708
  3. PEMBROLIZUMAB [Concomitant]
     Active Substance: PEMBROLIZUMAB
     Indication: Non-small cell lung cancer metastatic
     Dosage: 200 MG, CYCLICAL (EVERY 3 WEEKS)
     Route: 042
     Dates: start: 20210615, end: 20210615
  4. PEMBROLIZUMAB [Concomitant]
     Active Substance: PEMBROLIZUMAB
     Dosage: 200 MG, CYCLICAL (EVERY 3 WEEKS)
     Route: 042
     Dates: start: 20210708, end: 20210708
  5. CARBOPLATIN [Concomitant]
     Active Substance: CARBOPLATIN
     Indication: Non-small cell lung cancer metastatic
     Dosage: 5 MG/ML/MIN, CYCLICAL (EVERY 3 WEEKS)
     Route: 042
     Dates: start: 20210615, end: 20210615
  6. CARBOPLATIN [Concomitant]
     Active Substance: CARBOPLATIN
     Dosage: 5 MG/ML/MIN, CYCLICAL (EVERY 3 WEEKS)
     Route: 042
     Dates: start: 20210708, end: 20210708
  7. LENVATINIB MESYLATE [Concomitant]
     Active Substance: LENVATINIB MESYLATE
     Indication: Non-small cell lung cancer metastatic
     Dosage: 8 MG, DAILY
     Route: 048
     Dates: start: 20210615, end: 20210615
  8. LENVATINIB MESYLATE [Concomitant]
     Active Substance: LENVATINIB MESYLATE
     Dosage: 8 MG, DAILY
     Route: 048
     Dates: start: 20210616, end: 20210626
  9. FOLIC ACID [Concomitant]
     Active Substance: FOLIC ACID
     Indication: Product used for unknown indication
     Dosage: 0.4 MG
     Route: 065
     Dates: start: 20210510
  10. DEXAMETHASONE ACETATE [Concomitant]
     Active Substance: DEXAMETHASONE ACETATE
     Indication: Product used for unknown indication
     Dosage: 3.75 MG
     Route: 065
     Dates: start: 20210614, end: 20210616
  11. DIPHENHYDRAMINE HYDROCHLORIDE [Concomitant]
     Active Substance: DIPHENHYDRAMINE HYDROCHLORIDE
     Indication: Product used for unknown indication
     Dosage: 20 MG, UNKNOWN
     Route: 042
     Dates: start: 20210615, end: 20210616
  12. MAGNESIUM ISOGLYCYRRHIZINATE [Concomitant]
     Active Substance: MAGNESIUM ISOGLYCYRRHIZINATE
     Indication: Prophylaxis
     Dosage: 100 MG, UNKNOWN
     Route: 042
     Dates: start: 20210615, end: 20210616
  13. PALONOSETRON HYDROCHLORIDE [Concomitant]
     Active Substance: PALONOSETRON HYDROCHLORIDE
     Indication: Prophylaxis of nausea and vomiting
     Dosage: 0.25 MG, UNKNOWN
     Route: 042
     Dates: start: 20210615, end: 20210616
  14. FOSAPREPITANT DIMEGLUMINE [Concomitant]
     Active Substance: FOSAPREPITANT DIMEGLUMINE
     Indication: Prophylaxis of nausea and vomiting
     Dosage: 0.15 MG, UNKNOWN
     Route: 042
     Dates: start: 20210615, end: 20210615
  15. METOCLOPRAMIDE HYDROCHLORIDE [Concomitant]
     Active Substance: METOCLOPRAMIDE HYDROCHLORIDE
     Indication: Product used for unknown indication
     Dosage: 20 MG, UNKNOWN
     Route: 042
     Dates: start: 20210615, end: 20210616
  16. GRANISETRON HYDROCHLORIDE [Concomitant]
     Active Substance: GRANISETRON HYDROCHLORIDE
     Indication: Product used for unknown indication
     Dosage: 1 MG, UNKNOWN
     Route: 065
     Dates: start: 20210616
  17. TORSEMIDE [Concomitant]
     Active Substance: TORSEMIDE
     Indication: Product used for unknown indication
     Dosage: 20 MG
     Route: 065
     Dates: start: 20210615, end: 20210616
  18. OMEPRAZOLE SODIUM [Concomitant]
     Active Substance: OMEPRAZOLE SODIUM
     Indication: Prophylaxis
     Dosage: UNK MG, 40
     Route: 065
     Dates: start: 20210615, end: 20210616
  19. DEXAMETHASONE [Concomitant]
     Active Substance: DEXAMETHASONE
     Indication: Chemotherapy side effect prophylaxis
     Dosage: UNK, UNKNOWN
     Route: 065
  20. DIPHENHYDRAMINE [Concomitant]
     Active Substance: DIPHENHYDRAMINE
     Indication: Allergy prophylaxis
     Dosage: UNK, UNKNOWN
     Route: 065
  21. PROMETHAZINE [Concomitant]
     Active Substance: PROMETHAZINE HYDROCHLORIDE
     Indication: Prophylaxis of nausea and vomiting
  22. GLUTATHIONE REDUCED [Concomitant]
     Indication: Prophylaxis
     Dosage: UNK, UNKNOWN
  23. TORSEMIDE [Concomitant]
     Active Substance: TORSEMIDE
     Indication: Polyuria
     Dosage: UNK, UNKNOWN
     Route: 065
  24. INDOMETHACIN [Concomitant]
     Active Substance: INDOMETHACIN
     Indication: Hypothermia
     Dosage: UNK, UNKNOWN
     Route: 065
  25. SODIUM BICARBONATE [Concomitant]
     Active Substance: SODIUM BICARBONATE
     Indication: Blood uric acid increased
     Dosage: UNK, UNKNOWN
     Route: 065
  26. ALLOPURINOL [Concomitant]
     Active Substance: ALLOPURINOL
     Indication: Hyperuricaemia
     Dosage: UNK, UNKNOWN
     Route: 065
  27. CETYLPYRIDINIUM [Concomitant]
     Active Substance: CETYLPYRIDINIUM
     Indication: Oropharyngeal pain
     Dosage: UNK, UNKNOWN
     Route: 065
  28. TROPISETRON [Concomitant]
     Active Substance: TROPISETRON
     Indication: Nausea
     Dosage: UNK, UNKNOWN
     Route: 065
  29. CEFOPERAZONE SODIUM [Concomitant]
     Active Substance: CEFOPERAZONE SODIUM
     Indication: Infection
     Dosage: UNK, UNKNOWN
     Route: 065
  30. DEXTROSE AND SODIUM CHLORIDE [Concomitant]
     Active Substance: DEXTROSE MONOHYDRATE\SODIUM CHLORIDE
     Indication: Product used for unknown indication
     Dosage: UNK, UNKNOWN
     Route: 065
  31. DEXAMETHASONE SODIUM PHOSPHATE [Concomitant]
     Active Substance: DEXAMETHASONE SODIUM PHOSPHATE
     Indication: Product used for unknown indication
     Dosage: UNK, UNKNOWN
     Route: 065
  32. ASPIRIN LYSINE [Concomitant]
     Active Substance: ASPIRIN LYSINE
     Indication: Product used for unknown indication
     Dosage: UNK, UNKNOWN
     Route: 065
  33. FUROSEMIDE SODIUM [Concomitant]
     Active Substance: FUROSEMIDE SODIUM
     Indication: Product used for unknown indication
     Dosage: UNK, UNKNOWN
     Route: 065
  34. ANISODAMINE HYDROCHLORIDE [Concomitant]
     Indication: Product used for unknown indication
     Dosage: UNK, UNKNOWN
  35. CALCIUM GLUCONATE [Concomitant]
     Active Substance: CALCIUM GLUCONATE
     Indication: Blood potassium increased
     Dosage: UNK, UNKNOWN
     Route: 065
  36. HERBALS [Concomitant]
     Active Substance: HERBALS
     Indication: Renal disorder
     Dosage: 0.5 G, UNKNOWN
     Dates: start: 20210710
  37. KANG FU XIN [Concomitant]
     Indication: Oropharyngeal pain
     Dosage: 10 ML, UNKNOWN
     Dates: start: 20210712
  38. COMPOUND SODIUM CHLORIDE [CALCIUM CHLORIDE;PO [Concomitant]
     Indication: Fluid replacement
     Dosage: UNK UNK, UNKNOWN
     Route: 065
  39. INSULIN NOS [Concomitant]
     Active Substance: INSULIN NOS
     Indication: Blood potassium decreased
     Dosage: 8 DOSAGE FORM, UNKNOWN
     Route: 065
     Dates: start: 20210709, end: 20210709
  40. ADEMETIONINE BUTANEDISULFONATE [Concomitant]
     Active Substance: ADEMETIONINE BUTANEDISULFONATE
     Indication: Hepatic pain
     Dosage: UNK UNK, UNKNOWN
     Route: 065
  41. SODIUM CHLORIDE [Concomitant]
     Active Substance: SODIUM CHLORIDE
     Indication: Electrolyte substitution therapy
     Dosage: UNK UNK, UNKNOWN
     Route: 065
  42. AMERICAN COCKROACH [Concomitant]
     Active Substance: PERIPLANETA AMERICANA
     Indication: Oropharyngeal pain
     Dosage: UNK
     Route: 065
     Dates: start: 20210712
  43. LACTULOSE [Concomitant]
     Active Substance: LACTULOSE
     Indication: Feeling of relaxation
     Dosage: UNK UNK, UNKNOWN
     Route: 065
  44. ALBUMIN HUMAN [Concomitant]
     Active Substance: ALBUMIN HUMAN
     Indication: Volume blood increased
     Dosage: UNK UNK, UNKNOWN
     Route: 065
  45. ACETYLCYSTEINE [Concomitant]
     Active Substance: ACETYLCYSTEINE
     Indication: Productive cough
     Dosage: UNK UNK, UNKNOWN
     Route: 065
  46. ACETYLCYSTEINE [Concomitant]
     Active Substance: ACETYLCYSTEINE
     Indication: Asthma
  47. METHYLPREDNISOLONE [Concomitant]
     Active Substance: METHYLPREDNISOLONE
     Indication: Hormone therapy
     Dosage: UNK UNK, UNKNOWN
     Route: 065
  48. CETYLPYRIDINIUM CHLORIDE [Concomitant]
     Active Substance: CETYLPYRIDINIUM CHLORIDE
     Indication: Oropharyngeal pain
     Route: 065
  49. NIFEDIPINE [Concomitant]
     Active Substance: NIFEDIPINE
     Indication: Blood pressure measurement
     Route: 065
  50. ESTAZOLAM [Concomitant]
     Active Substance: ESTAZOLAM
     Indication: Anxiety
  51. ESTAZOLAM [Concomitant]
     Active Substance: ESTAZOLAM
     Indication: Insomnia
  52. NYSTATIN [Concomitant]
     Active Substance: NYSTATIN
     Indication: Candida infection
     Dosage: UNK UNK, UNKNOWN
     Route: 065
  53. POTASSIUM CHLORIDE [Concomitant]
     Active Substance: POTASSIUM CHLORIDE
     Indication: Mineral supplementation
     Dosage: UNK UNK, UNKNOWN
     Route: 065

REACTIONS (9)
  - Sepsis [Fatal]
  - Febrile neutropenia [Recovering/Resolving]
  - Febrile neutropenia [Recovered/Resolved]
  - Gastrointestinal haemorrhage [Recovering/Resolving]
  - Platelet count decreased [Not Recovered/Not Resolved]
  - Blood creatinine increased [Recovering/Resolving]
  - Platelet count decreased [Recovered/Resolved]
  - White blood cell count decreased [Recovered/Resolved]
  - White blood cell count decreased [Recovering/Resolving]

NARRATIVE: CASE EVENT DATE: 20210625
